FAERS Safety Report 8063741-3 (Version None)
Quarter: 2012Q1

REPORT INFORMATION
  Report Type: 
  Country: None (occurrence: None)
  Receive Date: 20120123
  Receipt Date: 20120116
  Transmission Date: 20120608
  Serious: Yes (Other)
  Sender: FDA-Public Use
  Company Number: PHHY2012GB003597

PATIENT
  Age: 88 Year
  Sex: Female

DRUGS (12)
  1. FLUTICASONE PROPIONATE [Concomitant]
     Indication: ASTHMA
     Dosage: 2 DF, QD
  2. FLUTICASONE PROPIONATE [Concomitant]
     Indication: CHRONIC OBSTRUCTIVE PULMONARY DISEASE
  3. FUROSEMIDE [Concomitant]
     Dosage: 40 MG, QD
  4. NITRAZEPAM [Concomitant]
     Indication: INSOMNIA
  5. OMEPRAZOLE [Concomitant]
     Dosage: 20 MG, QD
  6. MEROPENEM [Suspect]
     Indication: UROSEPSIS
     Dosage: 1 G, TID
     Route: 042
     Dates: start: 20111217
  7. BISOPROLOL [Concomitant]
     Indication: ACUTE CORONARY SYNDROME
     Dosage: 2.5 MG, QD
  8. NITRAZEPAM [Concomitant]
     Indication: ANXIETY
     Dosage: 5 MG, QD
  9. PROCHLORPERAZINE [Concomitant]
     Dosage: 5 MG, BID
  10. SIMVASTATIN [Concomitant]
     Indication: ACUTE CORONARY SYNDROME
     Dosage: 40 MG, QD
  11. CLOPIDOGREL [Suspect]
     Indication: ACUTE CORONARY SYNDROME
     Dosage: 75 MG, QD
     Route: 048
     Dates: start: 20111214
  12. TIOPRONIN [Concomitant]
     Dosage: 18 UG, QD

REACTIONS (1)
  - DYSGEUSIA [None]
